FAERS Safety Report 18772997 (Version 1)
Quarter: 2021Q1

REPORT INFORMATION
  Report Type: Other
  Country: IR (occurrence: IR)
  Receive Date: 20210122
  Receipt Date: 20210122
  Transmission Date: 20210419
  Serious: Yes (Hospitalization, Other)
  Sender: FDA-Public Use
  Company Number: IR-NUVO PHARMACEUTICALS INC-2105697

PATIENT
  Age: 35 Year
  Sex: Male

DRUGS (7)
  1. NEUROBION [Concomitant]
     Active Substance: CYANOCOBALAMIN\PYRIDOXINE\THIAMINE
     Route: 065
  2. PYRIDOXINE HCI [Concomitant]
     Active Substance: PYRIDOXINE HYDROCHLORIDE
     Route: 065
  3. PREDNISOLONE. [Concomitant]
     Active Substance: PREDNISOLONE
     Route: 048
  4. FOLIC ACID. [Suspect]
     Active Substance: FOLIC ACID
     Indication: BLINDNESS
     Route: 048
  5. SODIUM BICARBONATE. [Concomitant]
     Active Substance: SODIUM BICARBONATE
     Route: 042
  6. ALCOHOL. [Concomitant]
     Active Substance: ALCOHOL
     Route: 048
  7. THIAMINE. [Concomitant]
     Active Substance: THIAMINE
     Route: 065

REACTIONS (1)
  - Drug ineffective [Unknown]
